FAERS Safety Report 6140167-0 (Version None)
Quarter: 2009Q2

REPORT INFORMATION
  Report Type: 
  Country: None (occurrence: None)
  Receive Date: 20090401
  Receipt Date: 20090330
  Transmission Date: 20091009
  Serious: Yes (Life-Threatening)
  Sender: FDA-Public Use
  Company Number: JP-BAYER-200910903BYL

PATIENT
  Age: 68 Year
  Sex: Female

DRUGS (8)
  1. ASPIRIN [Suspect]
     Indication: MYOCARDIAL INFARCTION
     Route: 048
  2. CILOSTAZOL [Suspect]
     Indication: MYOCARDIAL INFARCTION
     Route: 048
  3. HEPARIN [Suspect]
     Indication: DRUG USE FOR UNKNOWN INDICATION
     Route: 065
  4. INSULIN [Concomitant]
     Indication: TYPE 2 DIABETES MELLITUS
     Route: 058
  5. ANTIBIOTICS [Concomitant]
     Indication: CHOLECYSTITIS
     Route: 065
  6. EPOGEN [Concomitant]
     Indication: NEPHROGENIC ANAEMIA
  7. RED BLOOD CELLS [Concomitant]
     Indication: NEPHROGENIC ANAEMIA
     Route: 041
  8. PROTON PUMP INHIBITORS [Concomitant]
     Indication: DRUG USE FOR UNKNOWN INDICATION
     Route: 065

REACTIONS (2)
  - ANEURYSM RUPTURED [None]
  - HAEMOBILIA [None]
